FAERS Safety Report 12731530 (Version 1)
Quarter: 2016Q3

REPORT INFORMATION
  Report Type: Spontaneous
  Country: US (occurrence: US)
  Receive Date: 20160912
  Receipt Date: 20160912
  Transmission Date: 20161109
  Serious: No
  Sender: FDA-Public Use
  Company Number: US-ASTRAZENECA-2016SE89501

PATIENT
  Age: 22037 Day
  Sex: Female
  Weight: 90.7 kg

DRUGS (7)
  1. MICARDIS HCT [Concomitant]
     Active Substance: HYDROCHLOROTHIAZIDE\TELMISARTAN
     Indication: BLOOD PRESSURE ABNORMAL
     Dosage: DAILY
  2. VITAMIN D3 [Concomitant]
     Active Substance: CHOLECALCIFEROL
  3. MYLOXICAM [Concomitant]
     Indication: BLOOD PRESSURE ABNORMAL
     Dosage: 7.5 MG TWO TIMES A DAY
     Dates: start: 201511
  4. ARIMIDEX [Suspect]
     Active Substance: ANASTROZOLE
     Indication: BREAST CANCER
     Route: 048
     Dates: start: 20150803
  5. MAGNESIUM [Concomitant]
     Active Substance: MAGNESIUM
  6. CALCIUM [Concomitant]
     Active Substance: CALCIUM
  7. VITAMIN E [Concomitant]
     Active Substance: .ALPHA.-TOCOPHEROL
     Indication: ADVERSE DRUG REACTION
     Dosage: 1000 MG

REACTIONS (12)
  - Myalgia [Unknown]
  - Feeling abnormal [Unknown]
  - Hypertension [Unknown]
  - Muscle spasms [Unknown]
  - Arthritis [Unknown]
  - Hot flush [Unknown]
  - Weight increased [Unknown]
  - Hypoaesthesia [Not Recovered/Not Resolved]
  - Inflammation [Unknown]
  - Adverse event [Unknown]
  - Arthralgia [Unknown]
  - Depressed mood [Unknown]

NARRATIVE: CASE EVENT DATE: 20160816
